FAERS Safety Report 16348549 (Version 3)
Quarter: 2022Q3

REPORT INFORMATION
  Report Type: Spontaneous
  Country: VE (occurrence: VE)
  Receive Date: 20190523
  Receipt Date: 20220907
  Transmission Date: 20221027
  Serious: Yes (Life-Threatening)
  Sender: FDA-Public Use
  Company Number: PHHY2019VE100457

PATIENT
  Age: 57 Year
  Sex: Female
  Weight: 70 kg

DRUGS (3)
  1. GLIVEC [Suspect]
     Active Substance: IMATINIB MESYLATE
     Indication: Chronic myeloid leukaemia
     Dosage: 4 DOSAGE FORM, QD
     Route: 048
     Dates: start: 201812, end: 20190325
  2. GLIVEC [Suspect]
     Active Substance: IMATINIB MESYLATE
     Dosage: 400 MG (4 X 00 MG)
     Route: 065
  3. RANITIDINE [Suspect]
     Active Substance: RANITIDINE
     Indication: Product used for unknown indication
     Dosage: UNK
     Route: 065

REACTIONS (12)
  - Cholelithiasis [Unknown]
  - Blood bilirubin increased [Unknown]
  - Fatigue [Unknown]
  - Pruritus [Unknown]
  - Yellow skin [Unknown]
  - Pyrexia [Unknown]
  - Malaise [Unknown]
  - Feeling abnormal [Unknown]
  - Haemoglobin abnormal [Unknown]
  - Vomiting [Unknown]
  - Diarrhoea [Unknown]
  - Device physical property issue [Unknown]

NARRATIVE: CASE EVENT DATE: 20190320
